FAERS Safety Report 7537448-2 (Version None)
Quarter: 2011Q2

REPORT INFORMATION
  Report Type: 
  Country: None (occurrence: None)
  Receive Date: 20110603
  Receipt Date: 20110518
  Transmission Date: 20111010
  Serious: Yes (Hospitalization)
  Sender: FDA-Public Use
  Company Number: 2011MA006084

PATIENT
  Age: 45 Year
  Sex: Male

DRUGS (1)
  1. VENLAFAXINE HYDROCHLORIDE [Suspect]
     Indication: DEPRESSION
     Dosage: 150MG;QD;PO
     Route: 048

REACTIONS (3)
  - DISEASE RECURRENCE [None]
  - MANIA [None]
  - DEPRESSION [None]
